FAERS Safety Report 5167218-4 (Version None)
Quarter: 2006Q4

REPORT INFORMATION
  Report Type: 
  Country: None (occurrence: None)
  Receive Date: 20061130
  Receipt Date: 20061117
  Transmission Date: 20070319
  Serious: Yes (Other)
  Sender: FDA-Public Use
  Company Number: 2006128791

PATIENT
  Age: 78 Year
  Sex: Male
  Weight: 45 kg

DRUGS (6)
  1. SULPERAZON (SULBACTAM, CEFOPERAZONE) [Suspect]
     Dosage: 1 GRAM (1 GRAM, 1 IN 1D), INTRAVENOUS
     Route: 042
     Dates: start: 20061013
  2. ZYVOX [Suspect]
     Indication: PNEUMONIA STAPHYLOCOCCAL
     Dosage: 1200 MG 600 MG, 2 IN 1 D), INTRAVENOUS
     Route: 042
     Dates: start: 20061015, end: 20061017
  3. AZITHROMYCIN [Suspect]
     Dosage: 500 MG (500 MG, 1 IN 1 D), ORAL
     Route: 048
     Dates: start: 20061014, end: 20061016
  4. UNASYN [Concomitant]
  5. ZYVOX [Concomitant]
  6. AZITHROMYCIN [Concomitant]

REACTIONS (5)
  - CEREBRAL INFARCTION [None]
  - CLONIC CONVULSION [None]
  - DELIRIUM [None]
  - DEPRESSED LEVEL OF CONSCIOUSNESS [None]
  - MYDRIASIS [None]
